FAERS Safety Report 21069360 (Version 2)
Quarter: 2022Q3

REPORT INFORMATION
  Report Type: Report from Study
  Country: US (occurrence: US)
  Receive Date: 20220712
  Receipt Date: 20220809
  Transmission Date: 20221027
  Serious: Yes (Hospitalization)
  Sender: FDA-Public Use
  Company Number: US-BIOVITRUM-2022US08585

PATIENT
  Sex: Male

DRUGS (4)
  1. ORFADIN [Suspect]
     Active Substance: NITISINONE
     Indication: Tyrosinaemia
     Dates: start: 20161103
  2. TYREX-2 [Concomitant]
  3. VITAMIN D [Concomitant]
     Active Substance: VITAMIN D NOS
  4. VITAMINS [Concomitant]
     Active Substance: VITAMINS

REACTIONS (11)
  - Abdominal pain upper [Unknown]
  - Nausea [Unknown]
  - Vomiting [Unknown]
  - Blood triglycerides increased [Unknown]
  - Blood pressure increased [Unknown]
  - Amino acid level increased [Unknown]
  - Laboratory test abnormal [Unknown]
  - Liver disorder [Unknown]
  - Product availability issue [Unknown]
  - Product use issue [Unknown]
  - Product dose omission issue [Unknown]
